FAERS Safety Report 7775485-3 (Version None)
Quarter: 2011Q3

REPORT INFORMATION
  Report Type: 
  Country: None (occurrence: None)
  Receive Date: 20110923
  Receipt Date: 20110920
  Transmission Date: 20111222
  Serious: Yes (Death, Hospitalization)
  Sender: FDA-Public Use
  Company Number: PHHY2011NL17921

PATIENT
  Sex: Male

DRUGS (7)
  1. ZOMETA [Suspect]
     Dosage: 4 MG/5 ML
     Route: 042
     Dates: start: 20110218
  2. HYDROCHLOROTHIAZIDE [Concomitant]
  3. TAMSULOSIN HCL [Concomitant]
     Dosage: 0.4 MG, QD
  4. ASCAL [Concomitant]
  5. OXYCODONE [Concomitant]
     Dosage: 20 MG, TID
  6. ZOMETA [Suspect]
     Indication: PROSTATE CANCER METASTATIC
     Dosage: 1 DF, UNK 4 MG/5 ML
     Route: 042
  7. OMEPRAZOLE [Concomitant]
     Dosage: 40 MG, UNK

REACTIONS (17)
  - WHITE BLOOD CELL COUNT DECREASED [None]
  - NEUTROPHIL COUNT DECREASED [None]
  - BLOOD LACTATE DEHYDROGENASE INCREASED [None]
  - FALL [None]
  - QUADRIPLEGIA [None]
  - METASTASES TO NECK [None]
  - PLATELET COUNT DECREASED [None]
  - LYMPHOCYTE COUNT DECREASED [None]
  - PAIN [None]
  - GENERAL PHYSICAL HEALTH DETERIORATION [None]
  - GRANULOCYTE COUNT DECREASED [None]
  - MENINGIOMA [None]
  - BLOOD UREA INCREASED [None]
  - SPINAL COLUMN INJURY [None]
  - BLOOD ALBUMIN DECREASED [None]
  - METASTASES TO BONE [None]
  - BLOOD GLUCOSE INCREASED [None]
